FAERS Safety Report 16756640 (Version 1)
Quarter: 2019Q3

REPORT INFORMATION
  Report Type: Spontaneous
  Country: US (occurrence: US)
  Receive Date: 20190829
  Receipt Date: 20190829
  Transmission Date: 20191005
  Serious: Yes (Disabling, Other)
  Sender: FDA-Public Use
  Company Number: US-REGENERON PHARMACEUTICALS, INC.-2019-49102

PATIENT

DRUGS (3)
  1. EYLEA [Suspect]
     Active Substance: AFLIBERCEPT
     Indication: NEOVASCULAR AGE-RELATED MACULAR DEGENERATION
     Dosage: UNK
     Route: 031
  2. EYLEA [Suspect]
     Active Substance: AFLIBERCEPT
     Dosage: IN THE LEFT EYE
     Route: 031
     Dates: start: 20190813, end: 20190813
  3. EYLEA [Suspect]
     Active Substance: AFLIBERCEPT
     Dosage: IN THE RIGHT EYE
     Route: 031
     Dates: start: 20190813, end: 20190813

REACTIONS (3)
  - Blindness unilateral [Unknown]
  - Eye inflammation [Unknown]
  - Wrong technique in product usage process [Unknown]
